FAERS Safety Report 6788346-3 (Version None)
Quarter: 2010Q2

REPORT INFORMATION
  Report Type: 
  Country: None (occurrence: None)
  Receive Date: 20100623
  Receipt Date: 20080410
  Transmission Date: 20101027
  Serious: Yes (Other)
  Sender: FDA-Public Use
  Company Number: US-PFIZER INC-2008007256

PATIENT
  Sex: Male
  Weight: 120.6 kg

DRUGS (10)
  1. SUTENT [Suspect]
     Indication: METASTATIC RENAL CELL CARCINOMA
     Dosage: QHS: EVERY DAY
     Route: 048
  2. ZOMETA [Concomitant]
  3. ACTOS [Concomitant]
  4. GLUCOTROL [Concomitant]
  5. ZOCOR [Concomitant]
  6. TRICHLOROETHYLENE [Concomitant]
  7. DETROL [Concomitant]
  8. ZOMETA [Concomitant]
  9. LISINOPRIL [Concomitant]
     Dates: start: 20080222
  10. ATENOLOL [Concomitant]
     Dates: start: 20080227

REACTIONS (2)
  - ADRENAL INSUFFICIENCY [None]
  - TEMPERATURE INTOLERANCE [None]
